FAERS Safety Report 17692885 (Version 1)
Quarter: 2020Q2

REPORT INFORMATION
  Report Type: Report from Study
  Country: GB (occurrence: GB)
  Receive Date: 20200422
  Receipt Date: 20200422
  Transmission Date: 20200714
  Serious: Yes (Hospitalization, Disabling)
  Sender: FDA-Public Use
  Company Number: GB-TAKEDA-2017MPI008451

PATIENT
  Age: 63 Year
  Sex: Male
  Weight: 85.5 kg

DRUGS (5)
  1. BORTEZOMIB. [Suspect]
     Active Substance: BORTEZOMIB
     Indication: PLASMA CELL MYELOMA
     Dosage: 1.3 MG/M2, UNK
     Route: 058
     Dates: start: 20170523, end: 20170822
  2. VENETOCLAX. [Concomitant]
     Active Substance: VENETOCLAX
     Indication: PLASMA CELL MYELOMA
     Dosage: 800 MG, Q3WEEKS
     Route: 048
     Dates: start: 20170523, end: 20171128
  3. VENETOCLAX. [Concomitant]
     Active Substance: VENETOCLAX
     Dosage: 800 UNK
     Route: 048
     Dates: start: 20171128, end: 20190731
  4. DECADRON [Concomitant]
     Active Substance: DEXAMETHASONE
     Indication: PLASMA CELL MYELOMA
     Dosage: 20 MILLIGRAM
     Route: 048
     Dates: start: 20170523, end: 20190731
  5. GABAPENTIN. [Concomitant]
     Active Substance: GABAPENTIN
     Dosage: UNK
     Route: 065

REACTIONS (6)
  - Diarrhoea [Recovered/Resolved]
  - Peripheral sensory neuropathy [Recovering/Resolving]
  - Musculoskeletal chest pain [Recovered/Resolved]
  - Orthostatic hypotension [Recovered/Resolved]
  - Sensory loss [Recovered/Resolved]
  - Lower respiratory tract infection [Recovered/Resolved]

NARRATIVE: CASE EVENT DATE: 20170711
